FAERS Safety Report 9498450 (Version 1)
Quarter: 2013Q3

REPORT INFORMATION
  Report Type: Spontaneous
  Country: US (occurrence: None)
  Receive Date: 20130903
  Receipt Date: 20130903
  Transmission Date: 20140515
  Serious: Yes (Hospitalization)
  Sender: FDA-Public Use
  Company Number: None

PATIENT
  Age: 71 Year
  Sex: Male
  Weight: 73 kg

DRUGS (2)
  1. GEMCITABINE [Suspect]
     Route: 042
     Dates: start: 20130809
  2. CISPLATIN [Suspect]
     Indication: BLADDER CANCER
     Route: 042

REACTIONS (4)
  - Cerebral infarction [None]
  - Dysarthria [None]
  - VIIth nerve paralysis [None]
  - Melaena [None]
